FAERS Safety Report 9410576 (Version 1)
Quarter: 2013Q3

REPORT INFORMATION
  Report Type: Spontaneous
  Country: US (occurrence: None)
  Receive Date: 20130718
  Receipt Date: 20130718
  Transmission Date: 20140515
  Serious: Yes (Other)
  Sender: FDA-Public Use
  Company Number: None

PATIENT
  Age: 61 Year
  Sex: Female
  Weight: 87 kg

DRUGS (5)
  1. HUMIRA [Suspect]
     Indication: RHEUMATOID ARTHRITIS
     Dosage: Q2WEEKS
     Dates: start: 20120801, end: 20130401
  2. MEDROXYPROGESTERONE [Concomitant]
  3. ESTRADIOL [Concomitant]
  4. TRETINOIN [Concomitant]
  5. HYDROCODONE/ACETAMINOPHEN [Concomitant]

REACTIONS (1)
  - Polymyositis [None]
